FAERS Safety Report 7308016-2 (Version None)
Quarter: 2011Q1

REPORT INFORMATION
  Report Type: 
  Country: None (occurrence: None)
  Receive Date: 20110223
  Receipt Date: 20110215
  Transmission Date: 20110831
  Serious: Yes (Hospitalization)
  Sender: FDA-Public Use
  Company Number: JP-ROCHE-708940

PATIENT
  Sex: Female

DRUGS (26)
  1. ACTEMRA [Suspect]
     Route: 041
     Dates: start: 20100114, end: 20100414
  2. RIBOFLAVIN TAB [Concomitant]
     Dosage: FORM: PERORAL AGENT
     Route: 048
  3. HYPEN [Concomitant]
     Route: 048
  4. ACTEMRA [Suspect]
     Route: 041
     Dates: start: 20080911, end: 20080911
  5. ACTEMRA [Suspect]
     Route: 041
     Dates: start: 20090903, end: 20090903
  6. BUP-4 [Concomitant]
     Dosage: DOSE FORM: PERORAL AGENT
     Route: 048
  7. ASPIRIN [Concomitant]
     Route: 048
  8. ACTEMRA [Suspect]
     Route: 041
     Dates: start: 20081008, end: 20081008
  9. ACTEMRA [Suspect]
     Route: 041
     Dates: start: 20090105, end: 20090105
  10. ACTEMRA [Suspect]
     Route: 041
     Dates: start: 20090202, end: 20090202
  11. ACTEMRA [Suspect]
     Route: 041
     Dates: start: 20080714, end: 20080714
  12. ACTEMRA [Suspect]
     Route: 041
     Dates: start: 20090730, end: 20090730
  13. RHEUMATREX [Concomitant]
     Route: 048
     Dates: start: 20080617
  14. PREDNISOLONE [Concomitant]
     Route: 048
  15. ULCERLMIN [Concomitant]
     Dosage: FORM:PREORAL AGENT
     Route: 048
  16. ACTEMRA [Suspect]
     Indication: RHEUMATOID ARTHRITIS
     Route: 041
     Dates: start: 20080613, end: 20080613
  17. ACTEMRA [Suspect]
     Route: 041
     Dates: start: 20081202, end: 20081202
  18. ACTEMRA [Suspect]
     Route: 041
     Dates: start: 20090316, end: 20090316
  19. ACTEMRA [Suspect]
     Route: 041
     Dates: start: 20090520, end: 20090520
  20. ACTEMRA [Suspect]
     Route: 041
     Dates: start: 20090625, end: 20090625
  21. TAKEPRON [Concomitant]
     Dosage: FORM: PERORAL AGENT
     Route: 048
  22. METHYCOBAL [Concomitant]
     Dosage: FORM: PERORAL AGENT
     Route: 048
  23. ACTEMRA [Suspect]
     Route: 041
     Dates: start: 20080812, end: 20080812
  24. ACTEMRA [Suspect]
     Route: 041
     Dates: start: 20081104, end: 20081104
  25. ACTEMRA [Suspect]
     Route: 041
     Dates: start: 20090417, end: 20090417
  26. LIPITOR [Concomitant]
     Route: 048

REACTIONS (5)
  - WHITE BLOOD CELL COUNT DECREASED [None]
  - LYMPHOCYTE COUNT DECREASED [None]
  - ANAEMIA [None]
  - RECTAL PROLAPSE [None]
  - ANAL ULCER HAEMORRHAGE [None]
